FAERS Safety Report 7669400-0 (Version None)
Quarter: 2011Q3

REPORT INFORMATION
  Report Type: 
  Country: None (occurrence: None)
  Receive Date: 20110808
  Receipt Date: 20110728
  Transmission Date: 20111222
  Serious: Yes (Other)
  Sender: FDA-Public Use
  Company Number: US-JNJFOC-20110800496

PATIENT
  Age: 25 Year
  Sex: Male
  Weight: 131.54 kg

DRUGS (3)
  1. MINOXIDIL [Suspect]
     Route: 061
  2. PROAIR HFA [Concomitant]
     Indication: ASTHMA
     Dosage: AS NEEDED FOR MANY YEARS
     Route: 065
  3. MINOXIDIL [Suspect]
     Indication: ALOPECIA
     Dosage: CAPFUL
     Route: 061
     Dates: start: 20110725, end: 20110727

REACTIONS (4)
  - HEADACHE [None]
  - HYPOAESTHESIA ORAL [None]
  - VIITH NERVE PARALYSIS [None]
  - HYPOAESTHESIA [None]
